FAERS Safety Report 16660003 (Version 1)
Quarter: 2019Q3

REPORT INFORMATION
  Report Type: Report from Study
  Country: CA (occurrence: CA)
  Receive Date: 20190802
  Receipt Date: 20190802
  Transmission Date: 20191004
  Serious: Yes (Other)
  Sender: FDA-Public Use
  Company Number: PHHY2018CA128382

PATIENT
  Age: 73 Year
  Sex: Male

DRUGS (2)
  1. SANDOSTATIN LAR DEPOT [Suspect]
     Active Substance: OCTREOTIDE ACETATE
     Dosage: 30 MG, Q3W
     Route: 030
  2. SANDOSTATIN LAR DEPOT [Suspect]
     Active Substance: OCTREOTIDE ACETATE
     Indication: CARCINOID SYNDROME
     Dosage: 30 MG, Q4W
     Route: 030
     Dates: start: 20180914

REACTIONS (14)
  - Malaise [Unknown]
  - Skin laceration [Unknown]
  - Hot flush [Unknown]
  - Loss of consciousness [Unknown]
  - Middle insomnia [Unknown]
  - Productive cough [Unknown]
  - Rash [Unknown]
  - Inappropriate schedule of product administration [Unknown]
  - Diarrhoea [Unknown]
  - Night sweats [Unknown]
  - Burning sensation [Recovered/Resolved]
  - Dizziness [Unknown]
  - Nasal congestion [Unknown]
  - Fall [Unknown]

NARRATIVE: CASE EVENT DATE: 2018
